FAERS Safety Report 23622930 (Version 1)
Quarter: 2024Q1

REPORT INFORMATION
  Report Type: Spontaneous
  Country: US (occurrence: None)
  Receive Date: 20240312
  Receipt Date: 20240312
  Transmission Date: 20240409
  Serious: Yes (Life-Threatening, Hospitalization)
  Sender: FDA-Public Use
  Company Number: None

PATIENT
  Age: 40 Year
  Sex: Male
  Weight: 58.5 kg

DRUGS (1)
  1. NIFEDIPINE [Suspect]
     Active Substance: NIFEDIPINE
     Indication: Anal fissure
     Dates: start: 20231214, end: 20240301

REACTIONS (5)
  - Dizziness [None]
  - Blood glucose decreased [None]
  - Chest pain [None]
  - Vision blurred [None]
  - Myocardial infarction [None]

NARRATIVE: CASE EVENT DATE: 20240301
